FAERS Safety Report 7166261-3 (Version None)
Quarter: 2010Q4

REPORT INFORMATION
  Report Type: 
  Country: None (occurrence: None)
  Receive Date: 20101216
  Receipt Date: 20101203
  Transmission Date: 20110411
  Serious: Yes (Other)
  Sender: FDA-Public Use
  Company Number: US-ALEXION-A201001557

PATIENT
  Sex: Female

DRUGS (1)
  1. SOLIRIS [Suspect]
     Indication: PAROXYSMAL NOCTURNAL HAEMOGLOBINURIA
     Dosage: UNK
     Route: 042

REACTIONS (5)
  - ADVERSE DRUG REACTION [None]
  - DEVICE RELATED INFECTION [None]
  - HAEMOGLOBIN DECREASED [None]
  - PRURITUS GENERALISED [None]
  - SWELLING FACE [None]
